FAERS Safety Report 20214336 (Version 1)
Quarter: 2021Q4

REPORT INFORMATION
  Report Type: Spontaneous
  Country: US (occurrence: US)
  Receive Date: 20211221
  Receipt Date: 20211221
  Transmission Date: 20220304
  Serious: Yes (Death, Other)
  Sender: FDA-Public Use
  Company Number: US-PFIZER INC-202101755091

PATIENT
  Age: 35 Year
  Sex: Male

DRUGS (2)
  1. EPINEPHRINE [Suspect]
     Active Substance: EPINEPHRINE
     Dosage: UNK
  2. VASOPRESSIN [Suspect]
     Active Substance: VASOPRESSIN
     Dosage: UNK

REACTIONS (3)
  - Off label use [Fatal]
  - Cardiac arrest [Fatal]
  - Thrombosis [Fatal]
